FAERS Safety Report 9175675 (Version 3)
Quarter: 2013Q3

REPORT INFORMATION
  Report Type: Report from Study
  Country: US (occurrence: US)
  Receive Date: 20130320
  Receipt Date: 20130904
  Transmission Date: 20140515
  Serious: Yes (Other)
  Sender: FDA-Public Use
  Company Number: US-ABBOTT-13P-163-1062313-00

PATIENT
  Age: 50 Year
  Sex: Female
  Weight: 67.65 kg

DRUGS (5)
  1. HUMIRA [Suspect]
     Indication: PSORIATIC ARTHROPATHY
     Dates: start: 20110309
  2. LIPITOR [Concomitant]
     Indication: BLOOD CHOLESTEROL INCREASED
  3. LOW-ESTREN FE [Concomitant]
     Indication: CONTRACEPTION
  4. MULTIVITAMIN [Concomitant]
     Indication: VITAMIN SUPPLEMENTATION
  5. FEOSOL [Concomitant]
     Indication: ANAEMIA

REACTIONS (5)
  - Dizziness [Not Recovered/Not Resolved]
  - Hydrocephalus [Not Recovered/Not Resolved]
  - Brain neoplasm [Not Recovered/Not Resolved]
  - Weight increased [Not Recovered/Not Resolved]
  - Dental caries [Not Recovered/Not Resolved]
